FAERS Safety Report 14315315 (Version 1)
Quarter: 2017Q4

REPORT INFORMATION
  Report Type: Spontaneous
  Country: US (occurrence: US)
  Receive Date: 20171221
  Receipt Date: 20171221
  Transmission Date: 20180321
  Serious: Yes (Other)
  Sender: FDA-Public Use
  Company Number: US-TERSERA THERAPEUTICS, LLC-2037596

PATIENT
  Age: 50 Year
  Sex: Female
  Weight: 107.94 kg

DRUGS (4)
  1. IBRANCE [Suspect]
     Active Substance: PALBOCICLIB
     Route: 048
     Dates: start: 201702
  2. ZOLADEX [Suspect]
     Active Substance: GOSERELIN ACETATE
     Indication: BREAST CANCER
     Route: 058
  3. FASLODEX [Suspect]
     Active Substance: FULVESTRANT
     Route: 030
     Dates: start: 201702
  4. XGEVA [Concomitant]
     Active Substance: DENOSUMAB
     Route: 030
     Dates: start: 201609

REACTIONS (3)
  - Metastases to bone [Unknown]
  - Pain [Unknown]
  - Administration site nerve damage [Unknown]

NARRATIVE: CASE EVENT DATE: 201711
